FAERS Safety Report 21138113 (Version 1)
Quarter: 2022Q3

REPORT INFORMATION
  Report Type: Spontaneous
  Country: CN (occurrence: CN)
  Receive Date: 20220727
  Receipt Date: 20220727
  Transmission Date: 20221026
  Serious: Yes (Other)
  Sender: FDA-Public Use
  Company Number: CN-BAYER-2022A102071

PATIENT
  Age: 90 Year
  Sex: Female
  Weight: 48 kg

DRUGS (1)
  1. AVELOX [Suspect]
     Active Substance: MOXIFLOXACIN HYDROCHLORIDE
     Indication: Anti-infective therapy
     Dosage: 400 MG, QD
     Route: 041
     Dates: start: 20220709, end: 20220709

REACTIONS (4)
  - Sinus tachycardia [Recovered/Resolved]
  - Atrial fibrillation [None]
  - Electrocardiogram T wave inversion [None]
  - Electrocardiogram ST segment abnormal [None]

NARRATIVE: CASE EVENT DATE: 20220709
